FAERS Safety Report 11798136 (Version 1)
Quarter: 2015Q4

REPORT INFORMATION
  Report Type: Spontaneous
  Country: US (occurrence: US)
  Receive Date: 20151203
  Receipt Date: 20151203
  Transmission Date: 20160305
  Serious: Yes (Hospitalization, Other)
  Sender: FDA-Public Use
  Company Number: US-SHIRE-US-002615

PATIENT

DRUGS (4)
  1. CALCIUM SUPPLEMENTS [Concomitant]
     Active Substance: CALCIUM
     Indication: HYPOCALCAEMIA
     Dosage: DF
  2. FORTEO [Concomitant]
     Active Substance: TERIPARATIDE
     Dosage: EVERY MORNING
     Dates: start: 20151010
  3. FORTEO [Concomitant]
     Active Substance: TERIPARATIDE
     Indication: HYPOCALCAEMIA
     Dosage: QAM (EVERY MORNING)
  4. NATPARA (PARATHYROID HORMONE) [Suspect]
     Active Substance: PARATHYROID HORMONE
     Indication: HYPOPARATHYROIDISM
     Dosage: 100 ?G, 1X/DAY:QD
     Route: 058
     Dates: start: 20151001

REACTIONS (7)
  - Palpitations [Recovered/Resolved]
  - Tetany [Recovered/Resolved]
  - Cellulitis [Unknown]
  - Hypocalcaemia [Recovered/Resolved]
  - Drug ineffective [Not Recovered/Not Resolved]
  - Dizziness [Recovered/Resolved]
  - Cardiac flutter [Recovered/Resolved]

NARRATIVE: CASE EVENT DATE: 201510
